FAERS Safety Report 21832285 (Version 1)
Quarter: 2023Q1

REPORT INFORMATION
  Report Type: Report from Study
  Country: IT (occurrence: IT)
  Receive Date: 20230106
  Receipt Date: 20230106
  Transmission Date: 20230418
  Serious: Yes (Hospitalization, Other)
  Sender: FDA-Public Use
  Company Number: None

PATIENT
  Age: 10 Year
  Sex: Male
  Weight: 44 kg

DRUGS (6)
  1. VINCRISTINE [Suspect]
     Active Substance: VINCRISTINE
     Indication: Burkitt^s lymphoma
     Dosage: 2 MILLIGRAM DAILY;
     Dates: start: 20221123, end: 20221123
  2. METHOTREXATE (METHOTREXATE SODIUM) [Suspect]
     Active Substance: METHOTREXATE SODIUM
     Indication: Burkitt^s lymphoma
     Dosage: 690 MG/DAY + 6,230 MG/DAY FROM DAY 23 TO DAY 11/24/22
     Dates: start: 20221123, end: 20221124
  3. CYCLOPHOSPHAMIDE [Suspect]
     Active Substance: CYCLOPHOSPHAMIDE
     Indication: Burkitt^s lymphoma
     Dosage: 277 MILLIGRAM DAILY;
     Dates: start: 20221123, end: 20221127
  4. DAUNORUBICIN HYDROCHLORIDE [Suspect]
     Active Substance: DAUNORUBICIN HYDROCHLORIDE
     Indication: Burkitt^s lymphoma
     Dosage: 34 MILLIGRAM DAILY;
     Dates: start: 20221127, end: 20221128
  5. RITUXIMAB [Suspect]
     Active Substance: RITUXIMAB
     Indication: Burkitt^s lymphoma
     Dosage: 519 MILLIGRAM DAILY;
     Dates: start: 20221122, end: 20221122
  6. LEUCOVORIN CALCIUM [Concomitant]
     Active Substance: LEUCOVORIN CALCIUM
     Indication: Product used for unknown indication
     Dosage: LEDERFOLIN 10 MG X2 VV/DAY ON 25.11 AND 1 VV/DAY ON 26.11
     Dates: start: 20221125, end: 20221126

REACTIONS (4)
  - Staphylococcal infection [Recovered/Resolved]
  - Febrile neutropenia [Recovered/Resolved]
  - Constipation [Recovering/Resolving]
  - Stomatitis [Recovering/Resolving]

NARRATIVE: CASE EVENT DATE: 20221130
